FAERS Safety Report 9994637 (Version 4)
Quarter: 2014Q4

REPORT INFORMATION
  Report Type: Report from Study
  Country: US (occurrence: US)
  Receive Date: 20140311
  Receipt Date: 20141118
  Transmission Date: 20150529
  Serious: Yes (Hospitalization, Other)
  Sender: FDA-Public Use
  Company Number: US-ALEXION PHARMACEUTICALS INC.-A201305081

PATIENT

DRUGS (4)
  1. EXJADE [Concomitant]
     Active Substance: DEFERASIROX
     Indication: IRON OVERLOAD
     Dosage: UNK
     Route: 065
     Dates: start: 20130429
  2. DEPO-PROVERA [Concomitant]
     Active Substance: MEDROXYPROGESTERONE ACETATE
     Indication: CONTRACEPTION
     Dosage: UNK
     Route: 058
     Dates: start: 20101122
  3. MIDRAN [Concomitant]
     Indication: MIGRAINE
     Dosage: UNK
     Route: 065
     Dates: start: 20101122
  4. SOLIRIS [Suspect]
     Active Substance: ECULIZUMAB
     Indication: PAROXYSMAL NOCTURNAL HAEMOGLOBINURIA
     Dosage: 900 MG, Q12D
     Route: 042
     Dates: start: 20110408

REACTIONS (8)
  - Dehydration [Not Recovered/Not Resolved]
  - Pollakiuria [Unknown]
  - Pulmonary embolism [Not Recovered/Not Resolved]
  - Infection [Unknown]
  - International normalised ratio abnormal [Unknown]
  - Deep vein thrombosis [Not Recovered/Not Resolved]
  - Transfusion [Not Recovered/Not Resolved]
  - Arnold-Chiari malformation [Unknown]

NARRATIVE: CASE EVENT DATE: 20140513
